FAERS Safety Report 9922567 (Version 3)
Quarter: 2014Q2

REPORT INFORMATION
  Report Type: Spontaneous
  Country: US (occurrence: US)
  Receive Date: 20140225
  Receipt Date: 20140418
  Transmission Date: 20141212
  Serious: Yes (Hospitalization, Other)
  Sender: FDA-Public Use
  Company Number: US-PFIZER INC-2014053026

PATIENT
  Age: 51 Year
  Sex: Male

DRUGS (7)
  1. INLYTA [Suspect]
     Indication: RENAL CANCER
     Dosage: 5 MG, 2X/DAY
     Route: 048
     Dates: start: 20130430, end: 201402
  2. LANTUS [Concomitant]
  3. NEXIUM [Concomitant]
  4. COZAAR [Concomitant]
  5. SIMVASTATIN [Concomitant]
  6. LEVOTHYROXINE [Concomitant]
  7. ONDANSETRON [Concomitant]

REACTIONS (1)
  - Cardiac disorder [Recovered/Resolved]
